FAERS Safety Report 9828282 (Version 1)
Quarter: 2013Q4

REPORT INFORMATION
  Report Type: Spontaneous
  Country: US (occurrence: None)
  Receive Date: 20131120
  Receipt Date: 20131120
  Transmission Date: 20140711
  Serious: Yes (Other)
  Sender: FDA-Public Use
  Company Number: 1000047615

PATIENT
  Age: 40 Year
  Sex: Male

DRUGS (1)
  1. VIIBRYD [Suspect]
     Route: 048

REACTIONS (2)
  - Dizziness [None]
  - Paraesthesia [None]
